FAERS Safety Report 21045856 (Version 1)
Quarter: 2022Q3

REPORT INFORMATION
  Report Type: Report from Study
  Country: IE (occurrence: IE)
  Receive Date: 20220706
  Receipt Date: 20220706
  Transmission Date: 20221027
  Serious: Yes (Hospitalization)
  Sender: FDA-Public Use
  Company Number: IE-JNJFOC-20220700050

PATIENT
  Age: 70 Year
  Sex: Female

DRUGS (1)
  1. STELARA [Suspect]
     Active Substance: USTEKINUMAB
     Indication: Psoriasis
     Dosage: AS PRESCRIPTION
     Route: 058
     Dates: start: 20151223

REACTIONS (3)
  - Spinal fracture [Unknown]
  - Fall [Unknown]
  - Inappropriate schedule of product administration [Unknown]
